FAERS Safety Report 15112269 (Version 1)
Quarter: 2018Q3

REPORT INFORMATION
  Report Type: Spontaneous
  Country: US (occurrence: US)
  Receive Date: 20180705
  Receipt Date: 20180705
  Transmission Date: 20181010
  Serious: No
  Sender: FDA-Public Use
  Company Number: US-AMAG PHARMACEUTICALS, INC.-AMAG201703596

PATIENT

DRUGS (1)
  1. FERAHEME [Suspect]
     Active Substance: FERUMOXYTOL NON-STOICHIOMETRIC MAGNETITE
     Indication: NUCLEAR MAGNETIC RESONANCE IMAGING
     Dosage: 4 MG/KG, UNK
     Route: 065

REACTIONS (2)
  - Headache [Unknown]
  - Hypertension [Unknown]
